FAERS Safety Report 5210593-2 (Version None)
Quarter: 2007Q1

REPORT INFORMATION
  Report Type: 
  Country: None (occurrence: None)
  Receive Date: 20070117
  Receipt Date: 20070103
  Transmission Date: 20070707
  Serious: Yes (Other)
  Sender: FDA-Public Use
  Company Number: GB-NOVOPROD-259705

PATIENT
  Age: 54 Year
  Sex: Male

DRUGS (46)
  1. ACTRAPID [Suspect]
     Indication: TOXIC EPIDERMAL NECROLYSIS
     Dosage: UNK U, PRN
     Route: 042
  2. ALFENTANIL [Suspect]
  3. AMOXICILLIN [Suspect]
     Dosage: 1 G, TID
     Route: 042
     Dates: start: 20060913
  4. AMOXICILLIN [Suspect]
     Dosage: 250 MG, UNK
     Route: 048
  5. AQUASEPT [Suspect]
  6. BACTROBAN [Suspect]
  7. CALCIUM CHLORIDE [Suspect]
  8. CALCIUM GLUCONATE [Suspect]
     Dosage: 10 ML, UNK
  9. CEFTRIAXONE [Suspect]
     Dosage: 2 G, UNK
     Route: 042
  10. CLEXANE [Suspect]
     Dosage: 20 MG, QD
     Route: 058
  11. DOBUTAMINE HCL [Suspect]
  12. FLUCONAZOLE [Suspect]
     Dosage: 200 MG, QD
     Route: 042
  13. FRAGMIN [Suspect]
     Dosage: 2500 IU, QD
  14. FUROSEMIDE [Suspect]
     Dosage: 20 MG, QD
     Route: 042
  15. FUROSEMIDE [Suspect]
     Dosage: 20 UNK, UNK
     Route: 048
  16. HYDROCORTISONE [Suspect]
     Dosage: 100 MG, QD
  17. LACTULOSE [Suspect]
     Dosage: 10 ML, UNK
  18. LANSOPRAZOLE [Suspect]
     Dosage: 30 MG, UNK
  19. LORAZEPAM [Suspect]
  20. MAGNESIUM SULFATE [Suspect]
  21. NORADRENALINE [Suspect]
  22. OMEPRAZOLE [Suspect]
     Dosage: 40 MG, UNK
     Route: 042
  23. PARACETAMOL [Suspect]
  24. PIRITON [Suspect]
     Dosage: 10 MG, QID
     Route: 042
  25. POTASSIUM CHLORIDE [Suspect]
  26. POTASSIUM PHOSPHATES [Suspect]
  27. PROPOFOL [Suspect]
  28. SALBUTAMOL [Suspect]
     Dosage: UNK, UNK
  29. SANDO K                            /00031402/ [Suspect]
     Dosage: 2 DF, TID
  30. SILVER SULFADIAZINE [Suspect]
     Route: 061
  31. SIMVASTATIN [Suspect]
     Dosage: 40 MG, QD
  32. SODIUM BICARBONATE [Suspect]
     Dosage: 100 MG, UNK
     Route: 042
  33. SODIUM CHLORIDE [Suspect]
     Dosage: .9 %, UNK
  34. THIAMIN [Suspect]
     Dosage: 100 UNK, QD
     Route: 048
  35. TINZAPARIN [Suspect]
     Dosage: 3500 UL, UNK
  36. ATROVENT [Concomitant]
  37. CIPROFLOXACIN [Concomitant]
     Dosage: 400 MG, QD
     Route: 042
  38. AMOXICILLIN + CLAVULANATE POTASSIUM [Concomitant]
     Dosage: 375 MG, TID
     Dates: start: 20060913
  39. ERYTHROMYCIN [Concomitant]
     Dosage: 250 MG, UNK
  40. METOCLOPRAMIDE [Concomitant]
     Dosage: 10 MG, UNK
     Route: 042
  41. MIDODRINE [Concomitant]
     Route: 048
  42. PANTOPRAZOLE SODIUM [Concomitant]
     Dosage: 40 MG, UNK
  43. TAZOCIN [Concomitant]
     Dosage: 4.5 G, TID
  44. VANCOMYCIN [Concomitant]
     Dosage: 1 G, QD
     Route: 042
  45. ZOPICLONE [Concomitant]
     Route: 048
  46. ASPIRIN [Concomitant]
     Route: 048

REACTIONS (1)
  - TOXIC EPIDERMAL NECROLYSIS [None]
